FAERS Safety Report 8622709 (Version 2)
Quarter: 2012Q4

REPORT INFORMATION
  Report Type: 
  Country: US (occurrence: US)
  Receive Date: 20120619
  Receipt Date: 20120917
  Transmission Date: 20130627
  Serious: Yes (Hospitalization, Other)
  Sender: FDA-Public Use
  Company Number: US-ACTELION-A-NJ2011-43743

PATIENT
  Age: 29 Year
  Sex: Female

DRUGS (4)
  1. TRACLEER [Suspect]
     Indication: PULMONARY ARTERIAL HYPERTENSION
     Dosage: UNK
     Route: 048
     Dates: start: 20081028
  2. ADCIRCA [Concomitant]
  3. COUMADIN [Concomitant]
  4. REMODULIN [Concomitant]

REACTIONS (3)
  - Myocardial infarction [Recovered/Resolved]
  - Syncope [Recovered/Resolved]
  - Nasopharyngitis [Recovered/Resolved]
